FAERS Safety Report 23777391 (Version 2)
Quarter: 2024Q2

REPORT INFORMATION
  Report Type: Spontaneous
  Country: CN (occurrence: CN)
  Receive Date: 20240424
  Receipt Date: 20240430
  Transmission Date: 20240716
  Serious: Yes (Hospitalization)
  Sender: FDA-Public Use
  Company Number: CN-002147023-NVSC2024CN085824

PATIENT
  Age: 30 Year
  Sex: Male
  Weight: 40 kg

DRUGS (3)
  1. SECUKINUMAB [Suspect]
     Active Substance: SECUKINUMAB
     Indication: Ankylosing spondylitis
     Dosage: 150 MG, QW ONCE IN 7 DAYS
     Route: 058
     Dates: start: 20231117, end: 20231210
  2. SECUKINUMAB [Suspect]
     Active Substance: SECUKINUMAB
     Dosage: 150 MG, Q4W ONCE IN 28 DAYS
     Route: 058
     Dates: start: 20231217, end: 20240217
  3. ETORICOXIB [Suspect]
     Active Substance: ETORICOXIB
     Indication: Ankylosing spondylitis
     Dosage: 120.000 MG, QD
     Route: 058
     Dates: start: 20231116, end: 20231231

REACTIONS (13)
  - Intestinal ulcer [Recovering/Resolving]
  - Frequent bowel movements [Unknown]
  - Mucous stools [Unknown]
  - Haematochezia [Unknown]
  - Diarrhoea [Recovering/Resolving]
  - Rectal tenesmus [Unknown]
  - Mucosal hyperaemia [Unknown]
  - Oedema mucosal [Unknown]
  - Large intestinal haemorrhage [Unknown]
  - Gastrointestinal erosion [Unknown]
  - Intestinal stenosis [Unknown]
  - Rectal haemorrhage [Unknown]
  - Condition aggravated [Unknown]

NARRATIVE: CASE EVENT DATE: 20240120
